FAERS Safety Report 5892540-3 (Version None)
Quarter: 2008Q3

REPORT INFORMATION
  Report Type: 
  Country: None (occurrence: None)
  Receive Date: 20080923
  Receipt Date: 20080915
  Transmission Date: 20090109
  Serious: Yes (Hospitalization, Other)
  Sender: FDA-Public Use
  Company Number: AU-WYE-G02159008

PATIENT
  Age: 26 Year
  Sex: Male

DRUGS (3)
  1. EFFEXOR XR [Suspect]
     Dosage: ^COUPLE OF DOSES^
     Route: 048
  2. EFFEXOR XR [Suspect]
     Dosage: ^TOOK COMPLETE BOX OF EFEXOR XR^
     Route: 048
     Dates: start: 20080910, end: 20080910
  3. ALCOHOL [Suspect]
     Dosage: UNKNOWN

REACTIONS (6)
  - CONVULSION [None]
  - INTENTIONAL OVERDOSE [None]
  - MALAISE [None]
  - MEDICATION RESIDUE [None]
  - SKIN LACERATION [None]
  - SUICIDE ATTEMPT [None]
